FAERS Safety Report 6984099-4 (Version None)
Quarter: 2010Q3

REPORT INFORMATION
  Report Type: 
  Country: None (occurrence: None)
  Receive Date: 20100915
  Receipt Date: 20090520
  Transmission Date: 20110219
  Serious: No
  Sender: FDA-Public Use
  Company Number: US-WYE-H09427809

PATIENT
  Sex: Male

DRUGS (6)
  1. PRISTIQ [Suspect]
     Indication: POST-TRAUMATIC STRESS DISORDER
     Route: 048
     Dates: start: 20090428
  2. PRISTIQ [Suspect]
     Indication: INSOMNIA
  3. CLONAZEPAM [Concomitant]
  4. ASPIRIN [Concomitant]
  5. ATENOLOL [Concomitant]
  6. ALTACE [Concomitant]

REACTIONS (2)
  - BLOOD PRESSURE SYSTOLIC INCREASED [None]
  - DRUG INEFFECTIVE [None]
